FAERS Safety Report 23514246 (Version 8)
Quarter: 2024Q4

REPORT INFORMATION
  Report Type: Spontaneous
  Country: PT (occurrence: PT)
  Receive Date: 20240212
  Receipt Date: 20241125
  Transmission Date: 20250115
  Serious: Yes (Other)
  Sender: MYLAN
  Company Number: PT-MYLANLABS-2024M1013707

PATIENT
  Age: 79 Year
  Sex: Female

DRUGS (2)
  1. ACETAMINOPHEN [Interacting]
     Active Substance: ACETAMINOPHEN
     Indication: Symptomatic treatment
     Dosage: 1 GRAM, TID (1 G EVERY 8 HOURS )
     Route: 065
  2. FLUCLOXACILLIN [Interacting]
     Active Substance: FLUCLOXACILLIN
     Indication: Antibiotic therapy
     Dosage: 12 GRAM, QD (12 G/DAY)
     Route: 042

REACTIONS (2)
  - Pyroglutamic acidosis [Recovering/Resolving]
  - Drug interaction [Recovering/Resolving]
